FAERS Safety Report 16413133 (Version 1)
Quarter: 2019Q2

REPORT INFORMATION
  Report Type: Other
  Country: CA (occurrence: CA)
  Receive Date: 20190611
  Receipt Date: 20190611
  Transmission Date: 20190711
  Serious: Yes (Death, Hospitalization, Other)
  Sender: FDA-Public Use
  Company Number: CA-ADIENNEP-2019AD000304

PATIENT
  Age: 32 Month
  Sex: Male

DRUGS (6)
  1. CISPLATIN. [Concomitant]
     Active Substance: CISPLATIN
  2. THIOTEPA. [Suspect]
     Active Substance: THIOTEPA
     Indication: MEDULLOBLASTOMA
     Dosage: 10 MG/KG DAILY
     Route: 065
  3. ETOPOSIDE. [Concomitant]
     Active Substance: ETOPOSIDE
  4. CARBOPLATIN. [Suspect]
     Active Substance: CARBOPLATIN
     Indication: MEDULLOBLASTOMA
     Dosage: 17 MG/KG DAILY
     Route: 065
  5. CYCLOPHOSPHAMIDE. [Concomitant]
     Active Substance: CYCLOPHOSPHAMIDE
  6. VINCRISTINE SULFATE. [Concomitant]
     Active Substance: VINCRISTINE SULFATE

REACTIONS (3)
  - Pulmonary arterial hypertension [Fatal]
  - Pulmonary vascular disorder [Fatal]
  - Cardiac failure congestive [Fatal]
